FAERS Safety Report 24302337 (Version 1)
Quarter: 2024Q3

REPORT INFORMATION
  Report Type: Spontaneous
  Country: FR (occurrence: FR)
  Receive Date: 20240910
  Receipt Date: 20240910
  Transmission Date: 20241017
  Serious: Yes (Life-Threatening, Other)
  Sender: RANBAXY
  Company Number: FR-AFSSAPS-CN2024000584

PATIENT
  Age: 21 Year
  Sex: Female

DRUGS (2)
  1. QUETIAPINE [Suspect]
     Active Substance: QUETIAPINE
     Indication: Poisoning deliberate
     Dosage: 1200 MILLIGRAM, IN TOTAL
     Route: 048
     Dates: start: 20240219, end: 20240219
  2. ACETAMINOPHEN [Suspect]
     Active Substance: ACETAMINOPHEN
     Indication: Poisoning deliberate
     Dosage: 16 GRAM, UNK
     Route: 048
     Dates: start: 20240219, end: 20240219

REACTIONS (4)
  - Intentional overdose [Recovered/Resolved]
  - Thrombocytopenia [Recovered/Resolved]
  - Anaemia [Not Recovered/Not Resolved]
  - Productive cough [Recovered/Resolved]

NARRATIVE: CASE EVENT DATE: 20240219
